FAERS Safety Report 5272838-2 (Version None)
Quarter: 2007Q1

REPORT INFORMATION
  Report Type: 
  Country: None (occurrence: None)
  Receive Date: 20070322
  Receipt Date: 20070320
  Transmission Date: 20070707
  Serious: Yes (Life-Threatening, Hospitalization, Disabling, Other)
  Sender: FDA-Public Use
  Company Number: HQWYE732506OCT06

PATIENT
  Sex: Male
  Weight: 53 kg

DRUGS (11)
  1. MYLOTARG [Suspect]
     Indication: ACUTE MYELOID LEUKAEMIA RECURRENT
     Route: 041
     Dates: start: 20060620, end: 20060620
  2. MYLOTARG [Suspect]
     Route: 041
     Dates: start: 20060720, end: 20060720
  3. VANCOMYCIN [Concomitant]
     Route: 041
     Dates: start: 20060620, end: 20060626
  4. FUNGUARD [Concomitant]
     Indication: PROPHYLAXIS
     Route: 041
     Dates: start: 20060620, end: 20060720
  5. CYLOCIDE [Concomitant]
     Indication: ACUTE MYELOID LEUKAEMIA RECURRENT
     Dosage: NOT PROVIDED
     Route: 042
     Dates: start: 20060719
  6. ITRACONAZOLE [Concomitant]
     Indication: PROPHYLAXIS
     Route: 048
     Dates: start: 20060720, end: 20060801
  7. OMEGACIN [Concomitant]
     Route: 041
     Dates: start: 20060713, end: 20060801
  8. BAKTAR [Concomitant]
     Indication: PROPHYLAXIS
     Route: 048
     Dates: start: 20060513
  9. METHOTREXATE [Concomitant]
     Indication: ACUTE MYELOID LEUKAEMIA RECURRENT
     Dosage: NOT PROVIDED
     Route: 037
     Dates: start: 20060719
  10. MAXIPIME [Concomitant]
     Route: 041
     Dates: start: 20060619, end: 20060627
  11. TIENAM [Concomitant]
     Route: 041
     Dates: start: 20060628, end: 20060712

REACTIONS (10)
  - ANAEMIA [None]
  - BLINDNESS UNILATERAL [None]
  - BLOOD BILIRUBIN INCREASED [None]
  - CONDITION AGGRAVATED [None]
  - PHARYNGITIS [None]
  - PLATELET COUNT DECREASED [None]
  - PNEUMONIA [None]
  - SEPSIS [None]
  - SEPTIC SHOCK [None]
  - WHITE BLOOD CELL COUNT DECREASED [None]
